FAERS Safety Report 10206043 (Version 1)
Quarter: 2014Q2

REPORT INFORMATION
  Report Type: Spontaneous
  Country: US (occurrence: None)
  Receive Date: 20140527
  Receipt Date: 20140527
  Transmission Date: 20141212
  Serious: Yes (Hospitalization)
  Sender: FDA-Public Use
  Company Number: COM-002265

PATIENT
  Age: 45 Year
  Sex: Female
  Weight: 72.58 kg

DRUGS (10)
  1. DOCUSATE SODIUM [Suspect]
     Indication: CONSTIPATION
     Dosage: TWO SOFTGELS, BY MOUTH ONCE DAILY AT DINNER
     Route: 048
     Dates: start: 20131001, end: 20140513
  2. SYNTHROID [Concomitant]
  3. ALDACTONE [Concomitant]
  4. DOXYCYCLINE [Concomitant]
  5. METFORMIN [Concomitant]
  6. METROGEL [Concomitant]
  7. TRAMADOL [Concomitant]
  8. ZANTAC [Concomitant]
  9. HYDROXYZINE [Concomitant]
  10. PREDNISONE [Concomitant]

REACTIONS (4)
  - Urticaria [None]
  - Lip swelling [None]
  - Swelling face [None]
  - Hypoaesthesia oral [None]
